FAERS Safety Report 8834690 (Version 1)
Quarter: 2012Q4

REPORT INFORMATION
  Report Type: Spontaneous
  Country: US (occurrence: None)
  Receive Date: 20120920
  Receipt Date: 20120920
  Transmission Date: 20130627
  Serious: Yes (Hospitalization)
  Sender: FDA-Public Use
  Company Number: 2012PROUSA01948

PATIENT
  Age: 76 Year
  Sex: Male
  Weight: 90 kg

DRUGS (11)
  1. PROVENGE (SIPULEUCEL-T) SUSPENSION, 250ML [Suspect]
     Indication: PROSTATE CANCER METASTATIC
     Dosage: 250 ml, single, Intravenous
     Route: 042
     Dates: start: 20120817, end: 20120817
  2. PROVENGE (SIPULEUCEL-T) SUSPENSION, 250ML [Suspect]
     Indication: PROSTATE CANCER METASTATIC
     Dosage: 250 ml, single, Intravenous
     Route: 042
     Dates: start: 20120831, end: 20120831
  3. VITAMIN B COMPLEX [Concomitant]
  4. VITAMIN A + D (ERGOCALCIFEROL, RETINOL) [Concomitant]
  5. XANAX (ALPRAZOLAM) [Concomitant]
  6. ATENOLOL [Concomitant]
  7. ALBUTEROL SULFATE AND IPRATROPIUM BROMIDE (IPRATROPIUM BROMIDE, SALBUTAMOL SULFATE) [Concomitant]
  8. SYMBICORT (BUDESONIDE, FORMOTEROL FUMARATE) [Concomitant]
  9. ALBUTEROL (SALBUTAMOL SULFATE) [Concomitant]
  10. HYDROCHLOROTHIAZIDE [Concomitant]
  11. TAMSULOSIN [Concomitant]

REACTIONS (4)
  - Deep vein thrombosis [None]
  - Leukocytosis [None]
  - Thrombocytopenia [None]
  - Renal failure acute [None]
